FAERS Safety Report 11506798 (Version 1)
Quarter: 2015Q3

REPORT INFORMATION
  Report Type: Spontaneous
  Country: US (occurrence: None)
  Receive Date: 20150914
  Receipt Date: 20150914
  Transmission Date: 20151125
  Serious: Yes (Disabling)
  Sender: FDA-Public Use
  Company Number: None

PATIENT
  Age: 72 Year
  Sex: Male
  Weight: 86.18 kg

DRUGS (14)
  1. BENICAR [Concomitant]
     Active Substance: OLMESARTAN MEDOXOMIL
  2. LIDOCAINE CREAM [Concomitant]
  3. ACETAMINOPHEN. [Concomitant]
     Active Substance: ACETAMINOPHEN
  4. FLECAINIDE ACETATE. [Concomitant]
     Active Substance: FLECAINIDE ACETATE
  5. ANAGRELIDE 0.5MG [Suspect]
     Active Substance: ANAGRELIDE
     Indication: ESSENTIAL THROMBOCYTHAEMIA
     Dosage: 4 PILLS
     Route: 048
  6. OXYCODONE [Concomitant]
     Active Substance: OXYCODONE
  7. PROBENICID [Concomitant]
  8. HYDROXYUREA. [Concomitant]
     Active Substance: HYDROXYUREA
  9. FINESTERIDE [Concomitant]
     Active Substance: FINASTERIDE
  10. MULTIPLE VITAMIN [Concomitant]
     Active Substance: VITAMINS
  11. ICD [Concomitant]
  12. CELEBREX [Concomitant]
     Active Substance: CELECOXIB
  13. XARELTO [Concomitant]
     Active Substance: RIVAROXABAN
  14. LYRICA [Concomitant]
     Active Substance: PREGABALIN

REACTIONS (6)
  - Feeling abnormal [None]
  - Abdominal pain [None]
  - Asthenia [None]
  - Ventricular tachycardia [None]
  - Palpitations [None]
  - Nausea [None]
